FAERS Safety Report 9381833 (Version 2)
Quarter: 2013Q3

REPORT INFORMATION
  Report Type: Spontaneous
  Country: US (occurrence: US)
  Receive Date: 20130703
  Receipt Date: 20130718
  Transmission Date: 20140515
  Serious: No
  Sender: FDA-Public Use
  Company Number: US-PFIZER INC-2013194778

PATIENT
  Sex: Female

DRUGS (2)
  1. SULFASALAZINE [Suspect]
     Dosage: UNK
  2. PLAQUENIL [Suspect]
     Dosage: UNK

REACTIONS (2)
  - Hypoaesthesia oral [Recovered/Resolved]
  - Feeling abnormal [Unknown]
